FAERS Safety Report 13972962 (Version 2)
Quarter: 2017Q4

REPORT INFORMATION
  Report Type: Spontaneous
  Country: JP (occurrence: JP)
  Receive Date: 20170915
  Receipt Date: 20171121
  Transmission Date: 20180321
  Serious: Yes (Other)
  Sender: FDA-Public Use
  Company Number: JP-GLAXOSMITHKLINE-JP2017JPN115386

PATIENT
  Age: 23 Year
  Sex: Female

DRUGS (13)
  1. LAMICTAL [Suspect]
     Active Substance: LAMOTRIGINE
     Indication: MYOCLONIC EPILEPSY
     Dosage: 25 MG, QOD
     Route: 048
     Dates: start: 20161027, end: 20161110
  2. DEPAKENE [Concomitant]
     Active Substance: VALPROIC ACID
     Indication: EPILEPSY
     Dosage: 600 MG, 1D
  3. LAMICTAL [Suspect]
     Active Substance: LAMOTRIGINE
     Dosage: 25 MG, BID
     Route: 048
     Dates: start: 20161124, end: 20161222
  4. LAMICTAL [Suspect]
     Active Substance: LAMOTRIGINE
     Dosage: 125 MG, 1D
     Route: 048
     Dates: start: 20161222, end: 20170119
  5. LAMICTAL [Suspect]
     Active Substance: LAMOTRIGINE
     Dosage: 175 MG, 1D
     Route: 048
     Dates: start: 20170413, end: 20170511
  6. LAMICTAL [Suspect]
     Active Substance: LAMOTRIGINE
     Dosage: 25 MG, QD
     Route: 048
     Dates: start: 20161110, end: 20161124
  7. LAMICTAL [Suspect]
     Active Substance: LAMOTRIGINE
     Dosage: 125 MG, 1D
     Route: 048
     Dates: start: 20170216, end: 20170316
  8. DEPAKENE [Concomitant]
     Active Substance: VALPROIC ACID
     Dosage: 50 MG, 1D
  9. LAMICTAL [Suspect]
     Active Substance: LAMOTRIGINE
     Dosage: 50 MG, BID
     Route: 048
     Dates: start: 20170119, end: 20170216
  10. LAMICTAL [Suspect]
     Active Substance: LAMOTRIGINE
     Dosage: 100 MG, BID
     Route: 048
     Dates: start: 20170706, end: 20170720
  11. LAMICTAL [Suspect]
     Active Substance: LAMOTRIGINE
     Dosage: 75 MG, BID
     Route: 048
     Dates: start: 20170316, end: 20170413
  12. LAMICTAL [Suspect]
     Active Substance: LAMOTRIGINE
     Dosage: 225 MG, 1D
     Route: 048
     Dates: start: 20170511, end: 20170706
  13. LAMICTAL [Suspect]
     Active Substance: LAMOTRIGINE
     Dosage: 125 MG, BID
     Route: 048
     Dates: start: 20170720

REACTIONS (3)
  - Epilepsy [Recovering/Resolving]
  - Myoclonic epilepsy [Recovering/Resolving]
  - Somnolence [Recovered/Resolved]
